FAERS Safety Report 25516885 (Version 1)
Quarter: 2025Q3

REPORT INFORMATION
  Report Type: Spontaneous
  Country: CA (occurrence: CA)
  Receive Date: 20250704
  Receipt Date: 20250704
  Transmission Date: 20251020
  Serious: Yes (Other)
  Sender: CELLTRION
  Company Number: CA-PFIZER INC-202500039799

PATIENT

DRUGS (20)
  1. INFLECTRA [Suspect]
     Active Substance: INFLIXIMAB-DYYB
     Indication: Ankylosing spondylitis
     Route: 042
     Dates: start: 20220504
  2. INFLECTRA [Suspect]
     Active Substance: INFLIXIMAB-DYYB
     Route: 042
     Dates: start: 20250108
  3. INFLECTRA [Suspect]
     Active Substance: INFLIXIMAB-DYYB
     Route: 042
     Dates: start: 20250218
  4. INFLECTRA [Suspect]
     Active Substance: INFLIXIMAB-DYYB
     Route: 042
     Dates: start: 20250513
  5. INFLECTRA [Suspect]
     Active Substance: INFLIXIMAB-DYYB
     Route: 042
     Dates: start: 20250625
  6. CYCLOBENZAPRINE [Concomitant]
     Active Substance: CYCLOBENZAPRINE
     Route: 065
  7. GABAPENTIN [Concomitant]
     Active Substance: GABAPENTIN
     Route: 048
  8. METHOTREXATE [Concomitant]
     Active Substance: METHOTREXATE
     Route: 065
  9. VALACYCLOVIR [Concomitant]
     Active Substance: VALACYCLOVIR HYDROCHLORIDE
     Route: 048
  10. AMLODIPINE [Concomitant]
     Active Substance: AMLODIPINE BESYLATE
     Route: 048
  11. PANTOPRAZOLE [Concomitant]
     Active Substance: PANTOPRAZOLE
     Route: 048
  12. CITALOPRAM [Concomitant]
     Active Substance: CITALOPRAM
     Route: 048
  13. CELECOXIB [Concomitant]
     Active Substance: CELECOXIB
     Route: 048
  14. ZOLPIDEM [Concomitant]
     Active Substance: ZOLPIDEM TARTRATE
     Route: 048
  15. CORTISONE ACETATE [Concomitant]
     Active Substance: CORTISONE ACETATE
     Route: 048
  16. SYNTHROID [Concomitant]
     Active Substance: LEVOTHYROXINE SODIUM
     Route: 048
  17. HYDROCHLOROTHIAZIDE [Concomitant]
     Active Substance: HYDROCHLOROTHIAZIDE
     Route: 048
  18. FOLIC ACID [Concomitant]
     Active Substance: FOLIC ACID
     Route: 048
  19. CYCLOSPORINE [Concomitant]
     Active Substance: CYCLOSPORINE
     Route: 048
  20. DULOXETINE [Concomitant]
     Active Substance: DULOXETINE

REACTIONS (2)
  - Blood pressure increased [Unknown]
  - Influenza [Recovering/Resolving]

NARRATIVE: CASE EVENT DATE: 20250212
